FAERS Safety Report 11717096 (Version 2)
Quarter: 2015Q4

REPORT INFORMATION
  Report Type: Spontaneous
  Country: US (occurrence: US)
  Receive Date: 20151104
  Receipt Date: 20151120
  Transmission Date: 20160304
  Serious: No
  Sender: FDA-Public Use
  Company Number: US-ELI_LILLY_AND_COMPANY-US201108002472

PATIENT
  Age: 68 Year
  Sex: Female

DRUGS (12)
  1. PLAVIX [Concomitant]
     Active Substance: CLOPIDOGREL BISULFATE
  2. FORTEO [Suspect]
     Active Substance: TERIPARATIDE
     Dosage: 20 UG, QD
     Dates: end: 201208
  3. FORTEO [Suspect]
     Active Substance: TERIPARATIDE
     Dosage: 20 UG, QD
     Dates: start: 20110802, end: 201208
  4. LANTUS [Concomitant]
     Active Substance: INSULIN GLARGINE
  5. FUROSEMIDE. [Concomitant]
     Active Substance: FUROSEMIDE
  6. IBUPROFEN. [Concomitant]
     Active Substance: IBUPROFEN
  7. MELOXICAM. [Concomitant]
     Active Substance: MELOXICAM
  8. FORTEO [Suspect]
     Active Substance: TERIPARATIDE
     Indication: OSTEOPOROSIS
     Dosage: 20 UG, QD
     Dates: start: 20110527, end: 20110801
  9. LISINOPRIL. [Concomitant]
     Active Substance: LISINOPRIL
  10. FENTANYL. [Concomitant]
     Active Substance: FENTANYL
  11. POTASSIUM [Concomitant]
     Active Substance: POTASSIUM
  12. NEXIUM [Concomitant]
     Active Substance: ESOMEPRAZOLE MAGNESIUM

REACTIONS (5)
  - Influenza like illness [Unknown]
  - Pain [Unknown]
  - Malaise [Unknown]
  - Nausea [Unknown]
  - Pain [Not Recovered/Not Resolved]

NARRATIVE: CASE EVENT DATE: 201107
